FAERS Safety Report 4907845-X (Version None)
Quarter: 2006Q1

REPORT INFORMATION
  Report Type: 
  Country: None (occurrence: None)
  Receive Date: 20060210
  Receipt Date: 20060201
  Transmission Date: 20060701
  Serious: Yes (Death, Hospitalization)
  Sender: FDA-Public Use
  Company Number: US-BOEHRINGER INGELHEIM PHARMACEUTICALS, INC.-2006-DE-00542GD

PATIENT
  Age: 24 Year
  Sex: Male
  Weight: 70 kg

DRUGS (18)
  1. CLONIDINE [Suspect]
     Indication: PAIN
     Route: 037
  2. CLONIDINE [Suspect]
     Indication: CANCER PAIN
     Route: 037
  3. MORPHINE [Suspect]
     Indication: PAIN
     Route: 037
  4. MORPHINE [Suspect]
     Indication: CANCER PAIN
  5. HYDROMORPHONE HCL [Suspect]
     Indication: PAIN
     Route: 037
  6. HYDROMORPHONE HCL [Suspect]
     Indication: CANCER PAIN
     Dosage: DOSES OF 80 MG PER HOUR
     Route: 042
  7. BUPIVACAINE [Suspect]
     Indication: PAIN
     Dosage: 0.2 % INFUSED AT A RATE OF 10 ML/H
     Route: 008
  8. BUPIVACAINE [Suspect]
     Indication: CANCER PAIN
     Dosage: 0.25 % INFUSED AT A RATE OF 4 ML/H
     Route: 037
  9. BUPIVACAINE [Suspect]
     Dosage: 0.6 % INFUSED AT A RATE OF 6 ML/H
     Route: 037
  10. BUPIVACAINE [Suspect]
     Dosage: 0.69 % INFUSED AT A RATE OF 6 ML/H
     Route: 037
  11. BUPIVACAINE [Suspect]
     Dosage: 0.645 % INFUSED AT A RATE OF 5 ML/H
     Route: 037
  12. AQUEOUS PHENOL [Suspect]
     Indication: PAIN
     Route: 037
  13. AQUEOUS PHENOL [Suspect]
     Indication: CANCER PAIN
  14. GABAPENTIN [Suspect]
     Indication: PAIN
     Route: 048
  15. GABAPENTIN [Suspect]
     Indication: CANCER PAIN
  16. MEPERIDINE HCL [Suspect]
     Indication: PAIN
     Route: 037
  17. MEPERIDINE HCL [Suspect]
     Indication: CANCER PAIN
  18. DEXTROSE [Concomitant]
     Route: 037

REACTIONS (5)
  - ABDOMINAL PAIN [None]
  - DEATH [None]
  - DRUG INEFFECTIVE [None]
  - INADEQUATE ANALGESIA [None]
  - INTESTINAL OBSTRUCTION [None]
